FAERS Safety Report 18697176 (Version 1)
Quarter: 2021Q1

REPORT INFORMATION
  Report Type: Spontaneous
  Country: US (occurrence: US)
  Receive Date: 20210104
  Receipt Date: 20210104
  Transmission Date: 20210419
  Serious: No
  Sender: FDA-Public Use
  Company Number: US-009507513-2012USA011156

PATIENT
  Sex: Male

DRUGS (3)
  1. CAPECITABINE. [Concomitant]
     Active Substance: CAPECITABINE
     Dosage: 500 MILLIGRAM
     Dates: start: 20201222
  2. INTRON A [Suspect]
     Active Substance: INTERFERON ALFA-2B
     Indication: RECTAL CANCER
     Dosage: 6.5 MU (0.65 ML), THREE TIMES WEEKLY
     Route: 058
     Dates: start: 202005
  3. TEMODAR [Concomitant]
     Active Substance: TEMOZOLOMIDE
     Dosage: 140 MILLIGRAM
     Dates: start: 20201222

REACTIONS (2)
  - Blood test [Unknown]
  - Product use in unapproved indication [Unknown]

NARRATIVE: CASE EVENT DATE: 2020
